FAERS Safety Report 4641503-4 (Version None)
Quarter: 2005Q2

REPORT INFORMATION
  Report Type: 
  Country: None (occurrence: None)
  Receive Date: 20050421
  Receipt Date: 20050413
  Transmission Date: 20051028
  Serious: Yes (Hospitalization)
  Sender: FDA-Public Use
  Company Number: GBWYE514718MAR05

PATIENT
  Age: 77 Year
  Sex: Male

DRUGS (5)
  1. LITHIUM CARBONATE [Suspect]
     Indication: DEPRESSION
     Dosage: 600MG PER DAY
     Route: 065
  2. EFFEXOR XR [Suspect]
     Indication: DEPRESSION
     Route: 065
     Dates: start: 20040101
  3. MIRTAZAPINE [Suspect]
     Indication: DEPRESSION
     Dosage: 60MG UNKNOWN
     Route: 065
  4. OLANZAPINE [Suspect]
     Indication: DEPRESSION
     Route: 065
     Dates: start: 20030318, end: 20050301
  5. EFFEXOR [Concomitant]
     Dosage: 37.5MG PER DAY
     Dates: start: 20040101, end: 20050301

REACTIONS (7)
  - ABDOMINAL PAIN [None]
  - ALANINE AMINOTRANSFERASE INCREASED [None]
  - BLOOD ALKALINE PHOSPHATASE INCREASED [None]
  - GAMMA-GLUTAMYLTRANSFERASE ABNORMAL [None]
  - INTESTINAL OBSTRUCTION [None]
  - LIVER FUNCTION TEST ABNORMAL [None]
  - TRANSAMINASES INCREASED [None]
